FAERS Safety Report 21036707 (Version 2)
Quarter: 2022Q3

REPORT INFORMATION
  Report Type: Report from Study
  Country: BE (occurrence: BE)
  Receive Date: 20220702
  Receipt Date: 20220713
  Transmission Date: 20221026
  Serious: Yes (Other)
  Sender: FDA-Public Use
  Company Number: BE-TEVA-2022-BE-2050591

PATIENT
  Age: 40 Year
  Sex: Female

DRUGS (1)
  1. COPAXONE [Suspect]
     Active Substance: GLATIRAMER ACETATE
     Indication: Multiple sclerosis
     Route: 065
     Dates: start: 20180411

REACTIONS (4)
  - Loss of consciousness [Unknown]
  - Malaise [Unknown]
  - Feeling hot [Unknown]
  - Visual impairment [Unknown]

NARRATIVE: CASE EVENT DATE: 20220615
